FAERS Safety Report 15153110 (Version 4)
Quarter: 2019Q1

REPORT INFORMATION
  Report Type: Spontaneous
  Country: US (occurrence: US)
  Receive Date: 20180717
  Receipt Date: 20190307
  Transmission Date: 20190417
  Serious: Yes (Other)
  Sender: FDA-Public Use
  Company Number: US-PFIZER INC-2018287323

PATIENT
  Age: 50 Year
  Sex: Female
  Weight: 80 kg

DRUGS (16)
  1. AMBIEN [Concomitant]
     Active Substance: ZOLPIDEM TARTRATE
     Indication: INSOMNIA
     Dosage: 5 MG, 1X/DAY (1 TABLET AT BED TIME)
     Route: 048
  2. LEVOTHYROXINE. [Concomitant]
     Active Substance: LEVOTHYROXINE
     Indication: HYPOTHYROIDISM
     Dosage: 100 UG, UNK (2 TABLET)
     Route: 048
  3. LOPRESSOR [Concomitant]
     Active Substance: METOPROLOL TARTRATE
     Indication: HYPERTENSION
     Dosage: 50 MG, 2X/DAY (ONE TWICE A DAY)
  4. XANAX [Concomitant]
     Active Substance: ALPRAZOLAM
     Indication: ANXIETY
     Dosage: 1 MG, 3X/DAY (THREE TIMES DAILY)
  5. PROAIR HFA [Concomitant]
     Active Substance: ALBUTEROL SULFATE
     Indication: CHRONIC OBSTRUCTIVE PULMONARY DISEASE
     Dosage: 2 DF, 4X/DAY (2 PUFFS EVERY 6 HOURS)
     Route: 055
  6. MIRTAZAPINE. [Concomitant]
     Active Substance: MIRTAZAPINE
     Indication: DEPRESSION
     Dosage: 15 MG, 1X/DAY (ONCE AT BED TIME)
     Route: 048
  7. PROMETHAZINE HCL [Concomitant]
     Active Substance: PROMETHAZINE HYDROCHLORIDE
     Indication: VOMITING
  8. PROMETHAZINE HCL [Concomitant]
     Active Substance: PROMETHAZINE HYDROCHLORIDE
     Indication: NAUSEA
     Dosage: 25 MG, 4X/DAY (EVERY 6 HOURS )
     Route: 048
  9. LOPRESSOR [Concomitant]
     Active Substance: METOPROLOL TARTRATE
     Indication: ARRHYTHMIA
  10. WELCHOL [Concomitant]
     Active Substance: COLESEVELAM HYDROCHLORIDE
     Indication: DIARRHOEA
     Dosage: 25 MG, AS NEEDED (1 TABLET AS NEEDED)
     Route: 048
  11. SUCRALFATE. [Concomitant]
     Active Substance: SUCRALFATE
     Indication: GASTRIC ULCER
     Dosage: 1 G, 2X/DAY
     Route: 048
  12. LYRICA [Suspect]
     Active Substance: PREGABALIN
     Indication: NEURALGIA
     Dosage: 150 MG, 2X/DAY
     Route: 048
     Dates: start: 20180622
  13. CYMBALTA [Concomitant]
     Active Substance: DULOXETINE HYDROCHLORIDE
     Indication: DEPRESSION
     Dosage: 60 MG, 1X/DAY
     Route: 048
  14. TRAZODONE HYDROCHLORIDE. [Concomitant]
     Active Substance: TRAZODONE HYDROCHLORIDE
     Dosage: 300 MG, 1X/DAY (ONCE AT BED TIME)
     Route: 048
  15. HYDROMORPHONE HYDROCHLORIDE. [Concomitant]
     Active Substance: HYDROMORPHONE HYDROCHLORIDE
     Indication: ABDOMINAL PAIN
     Dosage: 4 MG, AS NEEDED (1 TABLET EVERY 6 HOURS AS NEEDED)
  16. OMEPRAZOLE. [Concomitant]
     Active Substance: OMEPRAZOLE
     Indication: GASTROOESOPHAGEAL REFLUX DISEASE
     Dosage: 40 MG, DAILY (ONE CAPSULE DAILY)
     Route: 048

REACTIONS (3)
  - Condition aggravated [Unknown]
  - Intentional product misuse [Unknown]
  - Pancreatitis [Unknown]
